FAERS Safety Report 6207998-X (Version None)
Quarter: 2009Q2

REPORT INFORMATION
  Report Type: 
  Country: None (occurrence: None)
  Receive Date: 20090529
  Receipt Date: 20090311
  Transmission Date: 20091009
  Serious: No
  Sender: FDA-Public Use
  Company Number: A0772808A

PATIENT
  Age: 82 Year
  Sex: Female

DRUGS (1)
  1. VENTOLIN [Suspect]
     Indication: WHEEZING
     Dosage: 1PUFF VARIABLE DOSE
     Route: 055
     Dates: start: 20090311

REACTIONS (1)
  - TONGUE DRY [None]
